FAERS Safety Report 5828184-9 (Version None)
Quarter: 2008Q3

REPORT INFORMATION
  Report Type: 
  Country: None (occurrence: None)
  Receive Date: 20080731
  Receipt Date: 20080728
  Transmission Date: 20090109
  Serious: Yes (Other)
  Sender: FDA-Public Use
  Company Number: BE-BRISTOL-MYERS SQUIBB COMPANY-14280408

PATIENT
  Age: 63 Year
  Sex: Male

DRUGS (1)
  1. CEFEPIME [Suspect]
     Indication: URINARY TRACT INFECTION
     Route: 042

REACTIONS (4)
  - APHASIA [None]
  - CLONUS [None]
  - CONFUSIONAL STATE [None]
  - HEMIPLEGIA [None]
